FAERS Safety Report 10690278 (Version 1)
Quarter: 2015Q1

REPORT INFORMATION
  Report Type: Spontaneous
  Country: US (occurrence: None)
  Receive Date: 20150102
  Receipt Date: 20150102
  Transmission Date: 20150720
  Serious: Yes (Hospitalization)
  Sender: FDA-Public Use
  Company Number: None

PATIENT
  Age: 63 Year
  Sex: Male
  Weight: 90.7 kg

DRUGS (13)
  1. CREAON [Concomitant]
  2. LIDOCAINE. [Concomitant]
     Active Substance: LIDOCAINE
  3. DEXAMETHASONE. [Concomitant]
     Active Substance: DEXAMETHASONE
  4. LEUCOVORIN [Concomitant]
     Active Substance: LEUCOVORIN
  5. IRINOTECAN [Suspect]
     Active Substance: IRINOTECAN
  6. ALPRAZOLAM. [Concomitant]
     Active Substance: ALPRAZOLAM
  7. FLUOROURACIL. [Suspect]
     Active Substance: FLUOROURACIL
     Dosage: 180MG/M2 FOR CYCLE1
  8. OXALIPLATIN. [Suspect]
     Active Substance: OXALIPLATIN
  9. PROCHLORPERAZINE MALEATE. [Concomitant]
     Active Substance: PROCHLORPERAZINE MALEATE
  10. FOLINIC ACID [Suspect]
     Active Substance: LEUCOVORIN
     Indication: PANCREATIC CARCINOMA
     Dosage: THERAPY DATES: C1D1 - CONT, EVERY TWO WEEKS?
  11. ONDANSETRON HCL [Concomitant]
     Active Substance: ONDANSETRON HYDROCHLORIDE
  12. OXYCODONE HCL [Concomitant]
     Active Substance: OXYCODONE HYDROCHLORIDE
  13. FOLFIRINOX [Concomitant]
     Active Substance: FLUOROURACIL\IRINOTECAN\LEUCOVORIN\OXALIPLATIN

REACTIONS (9)
  - Pain [None]
  - Malaise [None]
  - Pyrexia [None]
  - Chills [None]
  - Cough [None]
  - Oropharyngeal pain [None]
  - Febrile neutropenia [None]
  - Diarrhoea [None]
  - Neutrophil count decreased [None]

NARRATIVE: CASE EVENT DATE: 20141230
